FAERS Safety Report 11069617 (Version 2)
Quarter: 2015Q2

REPORT INFORMATION
  Report Type: Spontaneous
  Country: US (occurrence: US)
  Receive Date: 20150427
  Receipt Date: 20150513
  Transmission Date: 20150821
  Serious: No
  Sender: FDA-Public Use
  Company Number: US-GLAXOSMITHKLINE-US2015054298

PATIENT
  Age: 67 Year
  Sex: Female

DRUGS (17)
  1. CHLOROQUINE [Concomitant]
     Active Substance: CHLOROQUINE\CHLOROQUINE PHOSPHATE
  2. VITAMIN C [Concomitant]
     Active Substance: ASCORBIC ACID
  3. SYNTHROID [Concomitant]
     Active Substance: LEVOTHYROXINE SODIUM
  4. MACROBID [Concomitant]
     Active Substance: NITROFURANTOIN\NITROFURANTOIN MONOHYDRATE
  5. NITRO-BID [Concomitant]
     Active Substance: NITROGLYCERIN
  6. LANSOPRAZOL [Concomitant]
     Active Substance: LANSOPRAZOLE
  7. LASIX [Concomitant]
     Active Substance: FUROSEMIDE
  8. WARFARIN [Concomitant]
     Active Substance: WARFARIN
  9. FLOVENT DISKUS [Suspect]
     Active Substance: FLUTICASONE PROPIONATE
     Indication: ASTHMA
     Dosage: 4 PUFF(S), BID
     Route: 055
  10. ALPHAGAN P [Concomitant]
     Active Substance: BRIMONIDINE TARTRATE
  11. CALCIUM [Concomitant]
     Active Substance: CALCIUM
  12. PROAIR HFA [Concomitant]
     Active Substance: ALBUTEROL SULFATE
  13. TRAMADOL [Concomitant]
     Active Substance: TRAMADOL
  14. DILTIAZEM [Concomitant]
     Active Substance: DILTIAZEM
  15. METOCLOPRAM [Concomitant]
     Active Substance: METOCLOPRAMIDE
  16. OXYGEN. [Concomitant]
     Active Substance: OXYGEN
  17. VITAMIN D [Concomitant]
     Active Substance: CHOLECALCIFEROL

REACTIONS (4)
  - Drug ineffective [Not Recovered/Not Resolved]
  - Dyspnoea [Not Recovered/Not Resolved]
  - Product quality issue [Unknown]
  - Expired product administered [Unknown]

NARRATIVE: CASE EVENT DATE: 20150121
